FAERS Safety Report 5156907-3 (Version None)
Quarter: 2006Q4

REPORT INFORMATION
  Report Type: 
  Country: None (occurrence: None)
  Receive Date: 20060918
  Receipt Date: 20060705
  Transmission Date: 20070319
  Serious: Yes (Other)
  Sender: FDA-Public Use
  Company Number: US-JNJFOC-20060700889

PATIENT
  Age: 9 Year
  Sex: Female

DRUGS (1)
  1. TOPAMAX [Suspect]
     Indication: NEUROTOXICITY
     Dates: start: 20060101

REACTIONS (2)
  - ANAEMIA [None]
  - LIVER FUNCTION TEST ABNORMAL [None]
